FAERS Safety Report 24209209 (Version 2)
Quarter: 2024Q3

REPORT INFORMATION
  Report Type: Spontaneous
  Country: EE (occurrence: EE)
  Receive Date: 20240814
  Receipt Date: 20240918
  Transmission Date: 20241017
  Serious: Yes (Hospitalization, Other)
  Sender: PFIZER
  Company Number: None

PATIENT
  Age: 53 Year
  Sex: Male

DRUGS (8)
  1. NIMENRIX [Suspect]
     Active Substance: CLOSTRIDIUM TETANI TOXOID ANTIGEN (FORMALDEHYDE INACTIVATED)\MENINGOCOCCAL POLYSACCHARIDE VACCINE, G
     Indication: Immunisation
     Dosage: DOSE NUMBER UNKNOWN 0.5 ML, SINGLE
     Route: 030
     Dates: start: 20240717, end: 20240717
  2. TRUMENBA [Suspect]
     Active Substance: NEISSERIA MENINGITIDIS SEROGROUP B RECOMBINANT LP2086 A05 PROTEIN VARIANT ANTIGEN\NEISSERIA MENINGIT
     Indication: Immunisation
     Dosage: DOSE NUMBER UNKNOWN 0.5 ML, SINGLE
     Route: 030
     Dates: start: 20240717, end: 20240717
  3. URSODIOL [Concomitant]
     Active Substance: URSODIOL
     Dosage: 250 MG EVERY 8 HOURS
     Route: 048
  4. CYKLOKAPRON [Concomitant]
     Active Substance: TRANEXAMIC ACID
     Dosage: 500 MG EVERY 8 HOURS
     Route: 048
  5. AMLODIPINE [Concomitant]
     Active Substance: AMLODIPINE BESYLATE
     Dosage: 5 MG, 1X/DAY
     Route: 048
  6. OMEPRAZOLE [Concomitant]
     Active Substance: OMEPRAZOLE
     Dosage: 20 MG, 1X/DAY
     Route: 048
  7. EXJADE [Concomitant]
     Active Substance: DEFERASIROX
     Dosage: 720 MG, 1X/DAY
     Route: 048
  8. ACYCLOVIR [Concomitant]
     Active Substance: ACYCLOVIR
     Dosage: 400 MG EVERY 12 HOURS
     Route: 048

REACTIONS (1)
  - Vaccination site infection [Recovered/Resolved]

NARRATIVE: CASE EVENT DATE: 20240719
